FAERS Safety Report 10828646 (Version 1)
Quarter: 2015Q1

REPORT INFORMATION
  Report Type: Spontaneous
  Country: None (occurrence: US)
  Receive Date: 20150219
  Receipt Date: 20150219
  Transmission Date: 20150721
  Serious: No
  Sender: FDA-Public Use
  Company Number: US-TARO-2015TAR00064

PATIENT
  Age: 8 Year
  Sex: Male
  Weight: 32.65 kg

DRUGS (2)
  1. ESCITALOPRAM [Suspect]
     Active Substance: ESCITALOPRAM OXALATE
     Indication: ANXIETY
  2. ESCITALOPRAM [Suspect]
     Active Substance: ESCITALOPRAM OXALATE
     Indication: OBSESSIVE-COMPULSIVE DISORDER
     Dosage: 2 ML, 1X/DAY
     Route: 048
     Dates: start: 2013

REACTIONS (2)
  - Drug ineffective [Not Recovered/Not Resolved]
  - Product substitution issue [Not Recovered/Not Resolved]

NARRATIVE: CASE EVENT DATE: 20150112
